FAERS Safety Report 15940807 (Version 3)
Quarter: 2019Q1

REPORT INFORMATION
  Report Type: Spontaneous
  Country: JP (occurrence: JP)
  Receive Date: 20190208
  Receipt Date: 20190325
  Transmission Date: 20190417
  Serious: Yes (Death, Hospitalization)
  Sender: FDA-Public Use
  Company Number: JP-ASTRAZENECA-2019SE15314

PATIENT
  Age: 72 Year
  Sex: Male
  Weight: 61 kg

DRUGS (7)
  1. INOVAN [Concomitant]
     Active Substance: DOPAMINE HYDROCHLORIDE
     Indication: BLOOD PRESSURE DECREASED
     Dosage: DOSE UNKNOWN, OPTIMAL DOSE, CONTINUOS
     Route: 041
     Dates: start: 20190118, end: 20190126
  2. BACTRAMIN [Concomitant]
     Active Substance: SULFAMETHOXAZOLE\TRIMETHOPRIM
     Indication: PNEUMONIA
     Route: 041
     Dates: start: 20190118, end: 20190126
  3. MEDICON [Concomitant]
     Active Substance: DEXTROMETHORPHAN HYDROBROMIDE
     Indication: COUGH
     Route: 048
     Dates: start: 20181218, end: 20190116
  4. TAGRISSO [Suspect]
     Active Substance: OSIMERTINIB
     Indication: NON-SMALL CELL LUNG CANCER
     Route: 048
     Dates: start: 20181221, end: 20190117
  5. MORPHINE HYDROCHLORIDE [Concomitant]
     Active Substance: MORPHINE HYDROCHLORIDE
     Indication: SEDATION
     Dosage: DOSE UNKNOWN, OPTIMAL DOSE, CONTINUOUSLY
     Route: 041
     Dates: start: 20190121, end: 20190126
  6. ATARAX-P [Concomitant]
     Active Substance: HYDROXYZINE HYDROCHLORIDE
     Indication: SEDATION
     Route: 041
     Dates: start: 20190124, end: 20190125
  7. SULBACILLIN [Concomitant]
     Active Substance: AMPICILLIN SODIUM\SULBACTAM SODIUM
     Indication: PNEUMONIA
     Route: 042
     Dates: start: 20190117, end: 20190118

REACTIONS (4)
  - Interstitial lung disease [Fatal]
  - Cough [Unknown]
  - Blood pressure decreased [Unknown]
  - Influenza [Unknown]

NARRATIVE: CASE EVENT DATE: 20190117
